FAERS Safety Report 5058167-0 (Version None)
Quarter: 2006Q3

REPORT INFORMATION
  Report Type: 
  Country: None (occurrence: None)
  Receive Date: 20060721
  Receipt Date: 20060411
  Transmission Date: 20061208
  Serious: Yes (Other)
  Sender: FDA-Public Use
  Company Number: 2006UW06425

PATIENT
  Age: 26908 Day
  Sex: Female
  Weight: 105.5 kg

DRUGS (5)
  1. ARIMIDEX [Suspect]
     Indication: BREAST CANCER FEMALE
     Route: 048
     Dates: start: 20050718
  2. ATIVAN [Concomitant]
     Indication: ANXIETY
     Dates: start: 19810101
  3. HYDROCHLOROTHIAZIDE [Concomitant]
     Indication: HYPERTENSION
     Dates: start: 20060403
  4. MULTI-VITAMIN [Concomitant]
  5. ROLAIDS [Concomitant]

REACTIONS (1)
  - EYE HAEMORRHAGE [None]
